FAERS Safety Report 21657629 (Version 1)
Quarter: 2022Q4

REPORT INFORMATION
  Report Type: Spontaneous
  Country: US (occurrence: None)
  Receive Date: 20221128
  Receipt Date: 20221128
  Transmission Date: 20230112
  Serious: Yes (Hospitalization)
  Sender: FDA-Public Use
  Company Number: None

PATIENT
  Age: 70 Year
  Sex: Female
  Weight: 58.5 kg

DRUGS (6)
  1. DUPIXENT [Suspect]
     Active Substance: DUPILUMAB
     Indication: Asthma
     Dates: start: 20221104, end: 20221118
  2. VALSARTAN [Concomitant]
     Active Substance: VALSARTAN
  3. VITAMINS [Concomitant]
     Active Substance: VITAMINS
  4. VITAMIN B COMPLEX [Concomitant]
     Active Substance: CYANOCOBALAMIN\DEXPANTHENOL\NIACINAMIDE\PYRIDOXINE HYDROCHLORIDE\RIBOFLAVIN 5^-PHOSPHATE SODIUM\THIA
  5. CALCIUM [Concomitant]
     Active Substance: CALCIUM
  6. VITAMIN D NOS [Concomitant]
     Active Substance: VITAMIN D NOS

REACTIONS (12)
  - Asthma [None]
  - Therapy non-responder [None]
  - Injection site swelling [None]
  - Injection site pain [None]
  - Injection site erythema [None]
  - Pyrexia [None]
  - Headache [None]
  - Arthralgia [None]
  - Joint swelling [None]
  - Neck pain [None]
  - Arthralgia [None]
  - Spinal pain [None]

NARRATIVE: CASE EVENT DATE: 20221128
